FAERS Safety Report 13167253 (Version 1)
Quarter: 2017Q1

REPORT INFORMATION
  Report Type: Spontaneous
  Country: US (occurrence: US)
  Receive Date: 20170131
  Receipt Date: 20170131
  Transmission Date: 20170428
  Serious: Yes (Other)
  Sender: FDA-Public Use
  Company Number: US-PFIZER INC-2017035087

PATIENT
  Age: 76 Year
  Sex: Female

DRUGS (1)
  1. PREMARIN [Suspect]
     Active Substance: ESTROGENS, CONJUGATED
     Dosage: UNK (PER MONTH)

REACTIONS (3)
  - Vaginal haemorrhage [Unknown]
  - Intentional product misuse [Unknown]
  - Vaginal laceration [Unknown]
